FAERS Safety Report 6397524-7 (Version None)
Quarter: 2009Q4

REPORT INFORMATION
  Report Type: 
  Country: None (occurrence: None)
  Receive Date: 20091002
  Receipt Date: 20090929
  Transmission Date: 20100525
  Serious: Yes (Hospitalization)
  Sender: FDA-Public Use
  Company Number: 2009020803

PATIENT
  Sex: Female

DRUGS (1)
  1. VIVAGLOBIN [Suspect]
     Indication: IMMUNODEFICIENCY COMMON VARIABLE
     Dosage: 4.16 GRAMS WEEKLY, SUBCUTANEOUS
     Route: 058
     Dates: start: 20071001

REACTIONS (2)
  - BIOPSY KIDNEY ABNORMAL [None]
  - NEPHROTIC SYNDROME [None]
